FAERS Safety Report 7230117-8 (Version None)
Quarter: 2011Q1

REPORT INFORMATION
  Report Type: 
  Country: None (occurrence: None)
  Receive Date: 20110118
  Receipt Date: 20110107
  Transmission Date: 20110831
  Serious: Yes (Other)
  Sender: FDA-Public Use
  Company Number: BR-AMGEN-BRASP2011001875

PATIENT

DRUGS (2)
  1. ENBREL [Suspect]
     Indication: JUVENILE ARTHRITIS
     Dosage: 17.5 MG, WEEKLY (0.7ML OF AN AMPOULE OF ETANERCEPT 25 MG)
     Route: 058
     Dates: start: 20100701
  2. METHOTREXATE [Concomitant]
     Dosage: UNK
     Dates: start: 20000101

REACTIONS (3)
  - GASTROINTESTINAL DISORDER [None]
  - APPLICATION SITE PRURITUS [None]
  - APPLICATION SITE PAPULES [None]
